FAERS Safety Report 15110742 (Version 3)
Quarter: 2019Q2

REPORT INFORMATION
  Report Type: Report from Study
  Country: MX (occurrence: MX)
  Receive Date: 20180705
  Receipt Date: 20190409
  Transmission Date: 20190711
  Serious: Yes (Hospitalization, Disabling, Other)
  Sender: FDA-Public Use
  Company Number: PHHY2018MX015648

PATIENT
  Age: 33 Year
  Sex: Female
  Weight: 95 kg

DRUGS (19)
  1. GILENYA [Suspect]
     Active Substance: FINGOLIMOD HYDROCHLORIDE
     Dosage: 0.5 MG, QD
     Route: 048
     Dates: start: 20190325
  2. TAFITRAM [Concomitant]
     Dosage: 1 DF, Q12H
     Route: 048
     Dates: start: 20171122
  3. ENSURE [Concomitant]
     Active Substance: AMINO ACIDS\DEXTROSE\ELECTROLYTES NOS\SOYBEAN OIL\VITAMINS
     Dosage: UNK
  4. NIDESEF [Concomitant]
     Indication: SPINAL OPERATION
     Dosage: 1 DF, Q12H
     Route: 048
  5. DOLO NEUROBION FORTE [Concomitant]
     Indication: PRODUCT USED FOR UNKNOWN INDICATION
     Dosage: 1 DF, QD
     Route: 048
  6. VITAMIN D2 [Concomitant]
     Active Substance: ERGOCALCIFEROL
     Indication: PRODUCT USED FOR UNKNOWN INDICATION
     Dosage: 1 DF, Q12H
     Route: 048
  7. GILENYA [Suspect]
     Active Substance: FINGOLIMOD HYDROCHLORIDE
     Dosage: 0.5 MG, Q72H
     Route: 048
     Dates: start: 201801, end: 201803
  8. KETOROLAC [Concomitant]
     Active Substance: KETOROLAC\KETOROLAC TROMETHAMINE
     Indication: PAIN
     Dosage: 1 DF, Q12H
     Route: 048
     Dates: start: 20171122
  9. KETOROLAC [Concomitant]
     Active Substance: KETOROLAC\KETOROLAC TROMETHAMINE
     Indication: SPINAL DISORDER
     Dosage: UNK, WHEN HAVING STRONG PAIN
  10. LYRICA [Concomitant]
     Active Substance: PREGABALIN
     Indication: NERVOUS SYSTEM DISORDER
     Dosage: 150 MG, Q12H
     Route: 065
     Dates: start: 20171122
  11. ENSURE [Concomitant]
     Active Substance: AMINO ACIDS\DEXTROSE\ELECTROLYTES NOS\SOYBEAN OIL\VITAMINS
     Indication: VITAMIN SUPPLEMENTATION
     Dosage: 450 ML, QD
     Route: 048
  12. GILENYA [Suspect]
     Active Substance: FINGOLIMOD HYDROCHLORIDE
     Indication: MULTIPLE SCLEROSIS
     Dosage: 0.5 MG, QD
     Route: 048
     Dates: start: 20130401, end: 20180102
  13. TEMGESIC [Concomitant]
     Active Substance: BUPRENORPHINE HYDROCHLORIDE
     Indication: PAIN
     Dosage: 1 ML, EVERY 8 DAYS DURING 1 MONTH
     Route: 030
     Dates: start: 20171122
  14. OMEGA 3 [Concomitant]
     Active Substance: OMEGA-3 FATTY ACIDS
     Indication: PRODUCT USED FOR UNKNOWN INDICATION
     Dosage: 2 DF, QD
     Route: 048
  15. GILENYA [Suspect]
     Active Substance: FINGOLIMOD HYDROCHLORIDE
     Dosage: 0.5 MG, QD
     Route: 048
     Dates: start: 20180629
  16. TRANSTEC [Concomitant]
     Active Substance: BUPRENORPHINE
     Indication: PAIN
     Dosage: 1 DF, Q96H (EVERY 4 DAYS)
     Route: 062
     Dates: start: 20171122
  17. MULTI VITAMIN [Concomitant]
     Active Substance: VITAMINS
     Indication: PRODUCT USED FOR UNKNOWN INDICATION
     Dosage: 450 ML, QD
  18. METICORTEN [Concomitant]
     Active Substance: PREDNISONE
     Indication: PAIN
     Dosage: 20 MG, QD (STOPPED 15 DAYS AGO)
     Route: 048
     Dates: start: 20171122
  19. SUKROL [Concomitant]
     Indication: PRODUCT USED FOR UNKNOWN INDICATION
     Dosage: 6 UNK, (3 TABLETS IN THE MORNING AND 3 TABLETS IN THE NIGHT)
     Route: 048

REACTIONS (20)
  - Muscular weakness [Unknown]
  - Head discomfort [Recovering/Resolving]
  - Brain injury [Recovering/Resolving]
  - Limb discomfort [Recovering/Resolving]
  - Pharyngitis [Not Recovered/Not Resolved]
  - Urinary incontinence [Unknown]
  - Intervertebral disc protrusion [Recovered/Resolved]
  - Brain stem embolism [Recovering/Resolving]
  - Paraplegia [Recovering/Resolving]
  - Muscle spasms [Recovering/Resolving]
  - Multiple sclerosis relapse [Recovered/Resolved]
  - Facial spasm [Recovering/Resolving]
  - Spinal disorder [Recovering/Resolving]
  - Procedural pain [Unknown]
  - Prescribed underdose [Unknown]
  - Feeling drunk [Recovering/Resolving]
  - Gait inability [Not Recovered/Not Resolved]
  - Multiple sclerosis relapse [Recovering/Resolving]
  - Abdominal pain [Recovering/Resolving]
  - Muscle tightness [Recovering/Resolving]

NARRATIVE: CASE EVENT DATE: 201304
